FAERS Safety Report 5491799-4 (Version None)
Quarter: 2007Q4

REPORT INFORMATION
  Report Type: 
  Country: None (occurrence: None)
  Receive Date: 20071018
  Receipt Date: 20071018
  Transmission Date: 20080405
  Serious: Yes (Life-Threatening, Hospitalization)
  Sender: FDA-Public Use
  Company Number: None

PATIENT
  Age: 39 Year
  Sex: Female
  Weight: 67.1324 kg

DRUGS (1)
  1. WALGREENS EAR WAX REMOVAL DROPS 6.5% WALGREENS [Suspect]
     Indication: CERUMEN IMPACTION
     Dosage: 5 DROPS ONCE OTIC
     Route: 001
     Dates: start: 20071010, end: 20071011

REACTIONS (4)
  - DYSPNOEA [None]
  - OTITIS MEDIA [None]
  - REACTION TO DRUG EXCIPIENTS [None]
  - THROAT TIGHTNESS [None]
